FAERS Safety Report 5660903-7 (Version None)
Quarter: 2008Q1

REPORT INFORMATION
  Report Type: 
  Country: None (occurrence: None)
  Receive Date: 20080311
  Receipt Date: 20080306
  Transmission Date: 20080703
  Serious: Yes (Death)
  Sender: FDA-Public Use
  Company Number: JP-SANOFI-SYNTHELABO-F01200701337

PATIENT
  Sex: Male

DRUGS (13)
  1. IRINOTECAN HYDROCHLORIDE [Suspect]
     Dosage: 150 MG
     Route: 041
     Dates: start: 20070922, end: 20070922
  2. ISOVORIN [Suspect]
     Route: 041
     Dates: end: 20070922
  3. FLUOROURACIL [Suspect]
     Route: 041
     Dates: end: 20070924
  4. KYTRIL [Concomitant]
     Dates: start: 20070922, end: 20070922
  5. SOLU-CORTEF [Concomitant]
  6. IRINOTECAN [Concomitant]
     Dates: start: 20070922, end: 20070922
  7. SHAKUYAKU-KANZO-TO [Concomitant]
     Dosage: UNK
     Dates: start: 20070702
  8. URSO 250 [Concomitant]
     Dosage: UNK
     Dates: start: 20070702
  9. 1 CONCOMITANT DRUG [Concomitant]
     Dosage: UNK
     Dates: start: 20070702
  10. LEUCON [Concomitant]
     Dosage: UNK
     Dates: start: 20070702
  11. BEVACIZUMAB [Suspect]
     Route: 041
     Dates: start: 20070922, end: 20070922
  12. ELPLAT [Suspect]
     Indication: RECTAL CANCER RECURRENT
     Dosage: UNK
     Route: 041
  13. TRAVELMIN [Concomitant]
     Dosage: UNK
     Dates: start: 20070702

REACTIONS (1)
  - HAEMORRHAGE [None]
